FAERS Safety Report 5345313-4 (Version None)
Quarter: 2007Q2

REPORT INFORMATION
  Report Type: 
  Country: None (occurrence: None)
  Receive Date: 20070601
  Receipt Date: 20070524
  Transmission Date: 20071010
  Serious: Yes (Other)
  Sender: FDA-Public Use
  Company Number: L07-GER-02129-01

PATIENT
  Age: 30 Year
  Sex: Female

DRUGS (5)
  1. CARBAMAZEPINE [Suspect]
     Indication: EPILEPSY
     Dosage: 300 MG BID
  2. CARBAMAZEPINE [Suspect]
     Indication: EPILEPSY
  3. CARBAMAZEPINE [Suspect]
     Indication: EPILEPSY
     Dosage: 1000 MG BID
  4. VALPROATE SODIUM [Concomitant]
  5. PHENYTOIN [Concomitant]

REACTIONS (17)
  - AGITATION [None]
  - COMPLEX PARTIAL SEIZURES [None]
  - CONVULSION [None]
  - DECREASED APPETITE [None]
  - DISINHIBITION [None]
  - DRUG WITHDRAWAL SYNDROME [None]
  - DYSPHORIA [None]
  - ELEVATED MOOD [None]
  - ENERGY INCREASED [None]
  - EUPHORIC MOOD [None]
  - FLIGHT OF IDEAS [None]
  - GRANDIOSITY [None]
  - INSOMNIA [None]
  - MANIA [None]
  - POOR QUALITY SLEEP [None]
  - PRESSURE OF SPEECH [None]
  - SUICIDAL IDEATION [None]
